FAERS Safety Report 7714028-7 (Version None)
Quarter: 2011Q3

REPORT INFORMATION
  Report Type: 
  Country: None (occurrence: None)
  Receive Date: 20110826
  Receipt Date: 20110525
  Transmission Date: 20111222
  Serious: Yes (Other)
  Sender: FDA-Public Use
  Company Number: GB-ARROW GEN-2011-07256

PATIENT
  Age: 83 Year
  Sex: Male

DRUGS (3)
  1. AMLODIPINE [Suspect]
     Dosage: 5 MG
     Route: 048
     Dates: end: 20101210
  2. AMLODIPINE [Suspect]
     Indication: PRODUCT USED FOR UNKNOWN INDICATION
     Dosage: 5 MG
     Route: 048
     Dates: start: 20100902, end: 20100916
  3. AMLODIPINE [Suspect]
     Dosage: 10 MG, DAILY
     Route: 048
     Dates: start: 20100916, end: 20101129

REACTIONS (2)
  - OEDEMA PERIPHERAL [None]
  - URETHRAL STENOSIS [None]
